FAERS Safety Report 6714054-0 (Version None)
Quarter: 2010Q2

REPORT INFORMATION
  Report Type: 
  Country: None (occurrence: None)
  Receive Date: 20100503
  Receipt Date: 20091125
  Transmission Date: 20101027
  Serious: Yes (Other)
  Sender: FDA-Public Use
  Company Number: 2009GR_R03606

PATIENT
  Age: 47 Year
  Sex: Female

DRUGS (3)
  1. TERBINAFINE HCL [Suspect]
     Indication: ONYCHOMYCOSIS
     Dosage: 250 MG (250 MG, 1 IN 1 D) ORAL
     Route: 048
     Dates: start: 20091113, end: 20091120
  2. ETORICOXIB (ETORICOXIB) [Concomitant]
  3. TERBINAFINE 10 MG/G CREAM (TERBINAFINE) [Concomitant]

REACTIONS (1)
  - GASTROINTESTINAL HAEMORRHAGE [None]
